FAERS Safety Report 7640889-6 (Version None)
Quarter: 2011Q3

REPORT INFORMATION
  Report Type: 
  Country: None (occurrence: None)
  Receive Date: 20110728
  Receipt Date: 20110728
  Transmission Date: 20111222
  Serious: Yes (Other)
  Sender: FDA-Public Use
  Company Number: None

PATIENT
  Age: 51 Year
  Sex: Female
  Weight: 53.523 kg

DRUGS (2)
  1. DOXEPIN [Suspect]
     Indication: INSOMNIA
     Dosage: 100MG
     Route: 048
     Dates: start: 20110725, end: 20110726
  2. DOXEPIN [Suspect]
     Indication: PAIN
     Dosage: 100MG
     Route: 048
     Dates: start: 20110725, end: 20110726

REACTIONS (3)
  - DIZZINESS [None]
  - DYSPNOEA [None]
  - FEELING HOT [None]
